FAERS Safety Report 19996541 (Version 2)
Quarter: 2022Q1

REPORT INFORMATION
  Report Type: Spontaneous
  Country: US (occurrence: US)
  Receive Date: 20211025
  Receipt Date: 20220128
  Transmission Date: 20220423
  Serious: No
  Sender: FDA-Public Use
  Company Number: US-ENDO PHARMACEUTICALS INC-2021-011610

PATIENT
  Sex: Female

DRUGS (3)
  1. QWO [Suspect]
     Active Substance: COLLAGENASE CLOSTRIDIUM HISTOLYTICUM-AAES
     Indication: Cellulite
     Dosage: UNK, UNKNOWN (TREATMENT THREE)
     Route: 065
     Dates: start: 20210630
  2. QWO [Suspect]
     Active Substance: COLLAGENASE CLOSTRIDIUM HISTOLYTICUM-AAES
     Dosage: UNK, UNKNOWN (TREATMENT TWO)
     Route: 065
     Dates: start: 20210602
  3. QWO [Suspect]
     Active Substance: COLLAGENASE CLOSTRIDIUM HISTOLYTICUM-AAES
     Dosage: UNK, UNKNOWN (TREATMENT ONE)
     Route: 065
     Dates: start: 202105

REACTIONS (5)
  - Lipodystrophy acquired [Unknown]
  - Dry skin [Not Recovered/Not Resolved]
  - Injection site indentation [Not Recovered/Not Resolved]
  - Skin laxity [Unknown]
  - Skin hyperpigmentation [Recovering/Resolving]

NARRATIVE: CASE EVENT DATE: 20210101
